FAERS Safety Report 15629843 (Version 1)
Quarter: 2018Q4

REPORT INFORMATION
  Report Type: Spontaneous
  Country: CN (occurrence: CN)
  Receive Date: 20181117
  Receipt Date: 20181117
  Transmission Date: 20190205
  Serious: Yes (Death)
  Sender: FDA-Public Use
  Company Number: PHHY2018CN155043

PATIENT
  Age: 76 Year
  Sex: Female

DRUGS (1)
  1. LAPATINIB [Suspect]
     Active Substance: LAPATINIB
     Indication: CHOLANGIOCARCINOMA
     Dosage: 1250 MG, QD
     Route: 048

REACTIONS (6)
  - Cholangiocarcinoma [Fatal]
  - Therapy non-responder [Unknown]
  - Malignant neoplasm progression [Fatal]
  - Metastases to lymph nodes [Fatal]
  - Product use in unapproved indication [Unknown]
  - Metastases to lung [Fatal]
